FAERS Safety Report 4868180-1 (Version None)
Quarter: 2005Q4

REPORT INFORMATION
  Report Type: 
  Country: None (occurrence: None)
  Receive Date: 20051229
  Receipt Date: 20051209
  Transmission Date: 20060501
  Serious: Yes (Other)
  Sender: FDA-Public Use
  Company Number: JP-SP-2005-02770

PATIENT
  Age: 55 Year
  Sex: Male

DRUGS (1)
  1. IMMUCYST [Suspect]
     Indication: BLADDER CANCER
     Route: 043
     Dates: start: 20050801, end: 20050901

REACTIONS (3)
  - BACK PAIN [None]
  - METASTASES TO SPINE [None]
  - SPONDYLITIS [None]
